FAERS Safety Report 6473768-0 (Version None)
Quarter: 2009Q4

REPORT INFORMATION
  Report Type: 
  Country: None (occurrence: None)
  Receive Date: 20091204
  Receipt Date: 20091128
  Transmission Date: 20100525
  Serious: Yes (Other)
  Sender: FDA-Public Use
  Company Number: FR-PFIZER INC-2009305386

PATIENT
  Age: 24 Year
  Sex: Female

DRUGS (3)
  1. VORICONAZOLE [Suspect]
     Indication: BRONCHOPULMONARY ASPERGILLOSIS
     Dosage: UNK
     Dates: start: 20050301, end: 20080101
  2. TACROLIMUS [Concomitant]
  3. MYCOPHENOLATE SODIUM [Concomitant]

REACTIONS (3)
  - ACTINIC KERATOSIS [None]
  - PHOTOSENSITIVITY REACTION [None]
  - SQUAMOUS CELL CARCINOMA [None]
